FAERS Safety Report 16451362 (Version 5)
Quarter: 2021Q3

REPORT INFORMATION
  Report Type: Spontaneous
  Country: US (occurrence: US)
  Receive Date: 20190619
  Receipt Date: 20210709
  Transmission Date: 20211014
  Serious: No
  Sender: FDA-Public Use
  Company Number: US-PFIZER INC-2019258743

PATIENT
  Age: 81 Year
  Sex: Female
  Weight: 63.49 kg

DRUGS (4)
  1. PREMARIN [Suspect]
     Active Substance: ESTROGENS, CONJUGATED
     Indication: VULVOVAGINAL DRYNESS
     Dosage: 0.5 G, WEEKLY
     Route: 067
  2. PREMARIN [Suspect]
     Active Substance: ESTROGENS, CONJUGATED
     Dosage: STRENGTH:0.5 G,  (0.625 MG ONCE A WEEK)
     Route: 067
  3. PREMARIN [Suspect]
     Active Substance: ESTROGENS, CONJUGATED
     Indication: VAGINAL DISORDER
     Dosage: UNK
     Route: 067
  4. GABAPENTIN. [Concomitant]
     Active Substance: GABAPENTIN
     Indication: NEUROPATHY PERIPHERAL
     Dosage: UNK

REACTIONS (7)
  - Off label use [Unknown]
  - Expired product administered [Unknown]
  - Malaise [Unknown]
  - Weight increased [Unknown]
  - Product prescribing error [Unknown]
  - Hot flush [Unknown]
  - Intentional dose omission [Unknown]
